FAERS Safety Report 8344646-7 (Version None)
Quarter: 2012Q2

REPORT INFORMATION
  Report Type: 
  Country: None (occurrence: None)
  Receive Date: 20120508
  Receipt Date: 20120507
  Transmission Date: 20120825
  Serious: Yes (Other)
  Sender: FDA-Public Use
  Company Number: US-JNJFOC-20120409550

PATIENT
  Sex: Female

DRUGS (2)
  1. ZYRTEC [Suspect]
     Indication: URTICARIA
     Dosage: ZYRTEC 10MG IR TABLET 30S USA312547204361 1254720436USA
     Route: 048
     Dates: start: 20120416
  2. ZYRTEC [Suspect]
     Route: 048

REACTIONS (3)
  - HALLUCINATION [None]
  - OFF LABEL USE [None]
  - NIGHTMARE [None]
